FAERS Safety Report 7620728-X (Version None)
Quarter: 2011Q3

REPORT INFORMATION
  Report Type: 
  Country: None (occurrence: None)
  Receive Date: 20110719
  Receipt Date: 20110711
  Transmission Date: 20111222
  Serious: Yes (Hospitalization)
  Sender: FDA-Public Use
  Company Number: DE-GLAXOSMITHKLINE-B0731316A

PATIENT
  Sex: Female
  Weight: 88 kg

DRUGS (2)
  1. TOPOTECAN [Suspect]
     Indication: OVARIAN CANCER RECURRENT
     Dosage: 1.25MG THREE TIMES PER WEEK
     Route: 042
     Dates: start: 20110516
  2. BLINDED STUDY MEDICATION [Suspect]
     Indication: OVARIAN CANCER RECURRENT
     Dosage: 800MG PER DAY
     Route: 048
     Dates: start: 20110625

REACTIONS (5)
  - EXFOLIATIVE RASH [None]
  - HAEMOGLOBIN DECREASED [None]
  - FATIGUE [None]
  - WHITE BLOOD CELL COUNT DECREASED [None]
  - PLATELET COUNT DECREASED [None]
